FAERS Safety Report 18400575 (Version 1)
Quarter: 2020Q4

REPORT INFORMATION
  Report Type: Report from Study
  Country: US (occurrence: US)
  Receive Date: 20201019
  Receipt Date: 20201019
  Transmission Date: 20210114
  Serious: Yes (Death, Other)
  Sender: FDA-Public Use
  Company Number: US-PFIZER INC-2020401727

PATIENT
  Age: 78 Year
  Sex: Female

DRUGS (1)
  1. IBRANCE [Suspect]
     Active Substance: PALBOCICLIB
     Indication: BREAST CANCER
     Dosage: 125 MG, CYCLIC ( 21 DAYS ON THEN 7 DAYS OFF)
     Route: 048
     Dates: start: 202009

REACTIONS (1)
  - Death [Fatal]

NARRATIVE: CASE EVENT DATE: 20200912
